FAERS Safety Report 5476540-3 (Version None)
Quarter: 2007Q3

REPORT INFORMATION
  Report Type: 
  Country: None (occurrence: None)
  Receive Date: 20070926
  Receipt Date: 20070404
  Transmission Date: 20080115
  Serious: Yes (Other)
  Sender: FDA-Public Use
  Company Number: 2006148857

PATIENT
  Age: 68 Year
  Sex: Male

DRUGS (16)
  1. ZYRTEC [Suspect]
     Indication: TRANSIENT ACANTHOLYTIC DERMATOSIS
     Dosage: 10 MG (10 MG,1 IN 1 D),ORAL
     Route: 048
     Dates: start: 20061127, end: 20061128
  2. LISINOPRIL [Concomitant]
  3. PRILOSEC [Concomitant]
  4. PLAVIX [Concomitant]
  5. NIACIN [Concomitant]
  6. ACETYLSALICYLIC ACID SRT [Concomitant]
  7. FOLIC ACID [Concomitant]
  8. ZETIA [Concomitant]
  9. TOPROL-XL [Concomitant]
  10. PREDNISONE (PREDNISONE) [Concomitant]
  11. ALL OTHER THERAPEUTIC PRODUCTS (ALL OTHER THERAPEUTIC PRODUCTS) [Concomitant]
  12. WELCHOL [Concomitant]
  13. NIASPAN [Concomitant]
  14. CALCITROL (CALCIUM CARBONATE, ERGOCALCIFEROL, RETINOL) [Concomitant]
  15. AMBIEN [Concomitant]
  16. NEXIUM [Concomitant]

REACTIONS (5)
  - CONFUSIONAL STATE [None]
  - DIZZINESS [None]
  - DRUG ADMINISTRATION ERROR [None]
  - IRRITABILITY [None]
  - RESTLESSNESS [None]
